FAERS Safety Report 14031608 (Version 13)
Quarter: 2022Q4

REPORT INFORMATION
  Report Type: Other
  Country: CA (occurrence: CA)
  Receive Date: 20171003
  Receipt Date: 20221222
  Transmission Date: 20230112
  Serious: Yes (Hospitalization, Other)
  Sender: FDA-Public Use
  Company Number: CA-002147023-PHHY2013CA041862

PATIENT
  Age: 38 Year
  Sex: Male

DRUGS (9)
  1. XOLAIR [Suspect]
     Active Substance: OMALIZUMAB
     Indication: Asthma
     Route: 058
     Dates: start: 20130419, end: 20130419
  2. XOLAIR [Suspect]
     Active Substance: OMALIZUMAB
     Route: 058
     Dates: start: 20131202
  3. XOLAIR [Suspect]
     Active Substance: OMALIZUMAB
     Route: 058
     Dates: start: 2017
  4. XOLAIR [Suspect]
     Active Substance: OMALIZUMAB
     Route: 058
     Dates: start: 201712
  5. ALBUTEROL [Concomitant]
     Active Substance: ALBUTEROL
     Indication: Product used for unknown indication
     Route: 065
  6. ADVAIR HFA [Concomitant]
     Active Substance: FLUTICASONE PROPIONATE\SALMETEROL XINAFOATE
     Indication: Product used for unknown indication
     Route: 065
  7. SINGULAIR [Concomitant]
     Active Substance: MONTELUKAST SODIUM
     Indication: Product used for unknown indication
     Route: 065
  8. NASONEX [Concomitant]
     Active Substance: MOMETASONE FUROATE
     Indication: Product used for unknown indication
     Route: 065
  9. PREDNISONE [Concomitant]
     Active Substance: PREDNISONE

REACTIONS (35)
  - Pneumonia pseudomonal [Unknown]
  - Drug dependence [Unknown]
  - Bronchitis [Not Recovered/Not Resolved]
  - Infection susceptibility increased [Unknown]
  - Immunodeficiency [Unknown]
  - Pneumonia [Not Recovered/Not Resolved]
  - Anaphylactic shock [Unknown]
  - Pulmonary function test decreased [Unknown]
  - Haemophilus infection [Unknown]
  - Aspergillus infection [Unknown]
  - Spinal fracture [Unknown]
  - Asthma [Unknown]
  - Dyspnoea [Unknown]
  - Illness [Not Recovered/Not Resolved]
  - Swollen tongue [Unknown]
  - Gastrooesophageal reflux disease [Unknown]
  - General physical health deterioration [Unknown]
  - Polyp [Recovering/Resolving]
  - Oropharyngeal pain [Unknown]
  - Pain in extremity [Not Recovered/Not Resolved]
  - Productive cough [Unknown]
  - Dyspnoea exertional [Unknown]
  - Seasonal allergy [Unknown]
  - Decreased activity [Unknown]
  - Wheezing [Unknown]
  - Urticaria [Recovered/Resolved]
  - Rash [Recovered/Resolved]
  - Weight increased [Unknown]
  - Fatigue [Not Recovered/Not Resolved]
  - Pruritus [Recovered/Resolved]
  - Pruritus [Unknown]
  - Secretion discharge [Unknown]
  - Cough [Unknown]
  - Product storage error [Unknown]
  - Pneumonia bacterial [Unknown]

NARRATIVE: CASE EVENT DATE: 20130419
